FAERS Safety Report 4610878-4 (Version None)
Quarter: 2005Q2

REPORT INFORMATION
  Report Type: 
  Country: None (occurrence: None)
  Receive Date: 20050301
  Receipt Date: 20040518
  Transmission Date: 20051028
  Serious: Yes (Other)
  Sender: FDA-Public Use
  Company Number: MYAM000010

PATIENT
  Age: 56 Year
  Sex: Female

DRUGS (4)
  1. MYAMBUTOL [Suspect]
     Indication: LYMPH NODE TUBERCULOSIS
     Dosage: UNK ORAL
     Route: 048
  2. PYRAZINAMIDE [Suspect]
     Indication: LYMPH NODE TUBERCULOSIS
  3. ISONIASID (ISONIASID) [Concomitant]
  4. RIMACTANE [Concomitant]

REACTIONS (1)
  - LIVER DISORDER [None]
